FAERS Safety Report 6826482-3 (Version None)
Quarter: 2010Q3

REPORT INFORMATION
  Report Type: 
  Country: None (occurrence: None)
  Receive Date: 20100709
  Receipt Date: 20100625
  Transmission Date: 20110219
  Serious: Yes (Other)
  Sender: FDA-Public Use
  Company Number: DE-WATSON-2010-08894

PATIENT
  Age: 17 Year
  Sex: Female

DRUGS (2)
  1. TOPIRAMATE [Suspect]
     Indication: MIGRAINE WITHOUT AURA
     Dosage: 75 MG, QHS
  2. METOPROLOL (WATSON LABORATORIES) [Suspect]
     Indication: MIGRAINE WITHOUT AURA
     Dosage: UNK

REACTIONS (6)
  - AGGRESSION [None]
  - ALICE IN WONDERLAND SYNDROME [None]
  - ALOPECIA [None]
  - DEPRESSION [None]
  - MOOD SWINGS [None]
  - PARAESTHESIA [None]
